FAERS Safety Report 4447361-5 (Version None)
Quarter: 2004Q3

REPORT INFORMATION
  Report Type: 
  Country: None (occurrence: None)
  Receive Date: 20040802
  Receipt Date: 20040622
  Transmission Date: 20050211
  Serious: No
  Sender: FDA-Public Use
  Company Number: 2004-117693-NL

PATIENT
  Age: 42 Year
  Sex: Female
  Weight: 59.1 kg

DRUGS (6)
  1. NUVARING [Suspect]
     Indication: CONTRACEPTION
     Dosage: DF DAILY VAGINAL
     Route: 067
  2. NUVARING [Suspect]
     Indication: PREMENSTRUAL SYNDROME
     Dosage: DF DAILY VAGINAL
     Route: 067
  3. UNSPECIFIED ALLERGY MEDICATION (OTC) [Concomitant]
  4. MULTI-VITAMINS [Concomitant]
  5. VITAMIN C [Concomitant]
  6. VITAMIN E [Concomitant]

REACTIONS (2)
  - MEDICAL DEVICE CHANGE [None]
  - VAGINAL CONTRACEPTIVE DEVICE EXPELLED [None]
